FAERS Safety Report 6251823-8 (Version None)
Quarter: 2009Q2

REPORT INFORMATION
  Report Type: 
  Country: None (occurrence: None)
  Receive Date: 20090630
  Receipt Date: 20090622
  Transmission Date: 20091009
  Serious: Yes (Hospitalization)
  Sender: FDA-Public Use
  Company Number: US-AVENTIS-200915468US

PATIENT
  Age: 65 Year
  Sex: Female

DRUGS (2)
  1. LOVENOX [Suspect]
     Indication: DEEP VEIN THROMBOSIS
  2. LOVENOX [Suspect]

REACTIONS (2)
  - HOSPITALISATION [None]
  - INJECTION SITE PAIN [None]
